FAERS Safety Report 24695830 (Version 2)
Quarter: 2025Q1

REPORT INFORMATION
  Report Type: Spontaneous
  Country: JP (occurrence: JP)
  Receive Date: 20241204
  Receipt Date: 20250113
  Transmission Date: 20250409
  Serious: Yes (Other)
  Sender: ALEXION PHARMACEUTICALS
  Company Number: JP-ASTRAZENECA-240135888_063010_P_1

PATIENT
  Age: 80 Year

DRUGS (28)
  1. DAPAGLIFLOZIN [Suspect]
     Active Substance: DAPAGLIFLOZIN
     Indication: Cardiac failure chronic
     Route: 048
  2. DAPAGLIFLOZIN [Suspect]
     Active Substance: DAPAGLIFLOZIN
  3. DAPAGLIFLOZIN [Suspect]
     Active Substance: DAPAGLIFLOZIN
     Route: 048
  4. DAPAGLIFLOZIN [Suspect]
     Active Substance: DAPAGLIFLOZIN
  5. DAPAGLIFLOZIN [Suspect]
     Active Substance: DAPAGLIFLOZIN
     Dosage: 10 MILLIGRAM, QD
     Route: 048
  6. DAPAGLIFLOZIN [Suspect]
     Active Substance: DAPAGLIFLOZIN
     Dosage: 10 MILLIGRAM, QD
  7. DAPAGLIFLOZIN [Suspect]
     Active Substance: DAPAGLIFLOZIN
     Dosage: 10 MILLIGRAM, QD
     Route: 048
  8. DAPAGLIFLOZIN [Suspect]
     Active Substance: DAPAGLIFLOZIN
     Dosage: 10 MILLIGRAM, QD
  9. TOLVAPTAN [Concomitant]
     Active Substance: TOLVAPTAN
     Route: 065
  10. TOLVAPTAN [Concomitant]
     Active Substance: TOLVAPTAN
     Route: 065
  11. FUROSEMIDE [Concomitant]
     Active Substance: FUROSEMIDE
     Route: 065
  12. FUROSEMIDE [Concomitant]
     Active Substance: FUROSEMIDE
     Route: 065
  13. FUROSEMIDE [Concomitant]
     Active Substance: FUROSEMIDE
     Route: 065
  14. FUROSEMIDE [Concomitant]
     Active Substance: FUROSEMIDE
     Route: 065
  15. FUROSEMIDE [Concomitant]
     Active Substance: FUROSEMIDE
     Route: 065
  16. FUROSEMIDE [Concomitant]
     Active Substance: FUROSEMIDE
     Route: 065
  17. FUROSEMIDE [Concomitant]
     Active Substance: FUROSEMIDE
     Route: 065
  18. FUROSEMIDE [Concomitant]
     Active Substance: FUROSEMIDE
     Route: 065
  19. DIGITALIS [Concomitant]
     Active Substance: DIGITALIS
     Route: 065
  20. DIGITALIS [Concomitant]
     Active Substance: DIGITALIS
     Route: 065
  21. DIGITALIS [Concomitant]
     Active Substance: DIGITALIS
     Route: 065
  22. DIGITALIS [Concomitant]
     Active Substance: DIGITALIS
     Route: 065
  23. DIGITALIS [Concomitant]
     Active Substance: DIGITALIS
     Route: 065
  24. DIGITALIS [Concomitant]
     Active Substance: DIGITALIS
     Route: 065
  25. DIGITALIS [Concomitant]
     Active Substance: DIGITALIS
     Route: 065
  26. DIGITALIS [Concomitant]
     Active Substance: DIGITALIS
     Route: 065
  27. SACUBITRIL [Concomitant]
     Active Substance: SACUBITRIL
     Route: 065
  28. SACUBITRIL [Concomitant]
     Active Substance: SACUBITRIL
     Route: 065

REACTIONS (1)
  - Hyperkalaemia [Unknown]
